FAERS Safety Report 11259551 (Version 3)
Quarter: 2015Q3

REPORT INFORMATION
  Report Type: Report from Study
  Country: PL (occurrence: PL)
  Receive Date: 20150710
  Receipt Date: 20150813
  Transmission Date: 20151125
  Serious: Yes (Hospitalization)
  Sender: FDA-Public Use
  Company Number: PL-UCBSA-2015021540

PATIENT
  Age: 37 Year
  Sex: Male

DRUGS (6)
  1. POLPRAZOL [Concomitant]
     Active Substance: OMEPRAZOLE
     Indication: PROPHYLAXIS
     Dosage: 20 MG, ONCE DAILY (QD)
     Dates: start: 200808
  2. CERTOLIZUMAB PEGOL ASP [Suspect]
     Active Substance: CERTOLIZUMAB PEGOL
     Indication: ANKYLOSING SPONDYLITIS
     Dosage: DOSE: 400 MG
     Route: 058
     Dates: start: 20110620, end: 20150421
  3. METYPRED [Concomitant]
     Active Substance: METHYLPREDNISOLONE
     Indication: SPONDYLITIS
     Dosage: 4 MG, ONCE DAILY (QD)
     Dates: start: 20080521
  4. DICLOFENAC SODIUM. [Concomitant]
     Active Substance: DICLOFENAC SODIUM
     Indication: SPONDYLITIS
     Dosage: 100 MG, ONCE DAILY (QD)
     Dates: start: 201103
  5. METHOTREXATE [Concomitant]
     Active Substance: METHOTREXATE
     Indication: SPONDYLITIS
     Dosage: 20 MG, WEEKLY (QW)
     Dates: start: 20100915
  6. ACIDUM FOLICUM [Concomitant]
     Active Substance: FOLIC ACID
     Indication: UNEVALUABLE EVENT
     Dosage: 5 MG, WEEKLY (QW)
     Dates: start: 200806

REACTIONS (1)
  - Clear cell renal cell carcinoma [Recovered/Resolved with Sequelae]

NARRATIVE: CASE EVENT DATE: 20150617
